FAERS Safety Report 4513657-1 (Version None)
Quarter: 2004Q4

REPORT INFORMATION
  Report Type: 
  Country: None (occurrence: None)
  Receive Date: 20041130
  Receipt Date: 20040819
  Transmission Date: 20050328
  Serious: No
  Sender: FDA-Public Use
  Company Number: US-GLAXOSMITHKLINE-A0522810A

PATIENT
  Age: 55 Year
  Sex: Female

DRUGS (2)
  1. WELLBUTRIN XL [Suspect]
     Indication: DEPRESSION
     Dosage: 450MG PER DAY
     Route: 048
  2. ADDERALL 10 [Concomitant]
     Dosage: 10MG TWICE PER DAY
     Route: 048

REACTIONS (4)
  - ACCIDENTAL OVERDOSE [None]
  - AGITATION [None]
  - DIZZINESS [None]
  - NAUSEA [None]
